FAERS Safety Report 20492921 (Version 4)
Quarter: 2022Q2

REPORT INFORMATION
  Report Type: Report from Study
  Country: TW (occurrence: TW)
  Receive Date: 20220219
  Receipt Date: 20220505
  Transmission Date: 20220721
  Serious: Yes (Other)
  Sender: FDA-Public Use
  Company Number: TW-NOVARTISPH-NVSC2022TW035379

PATIENT
  Age: 51 Year
  Sex: Female

DRUGS (17)
  1. MYFORTIC [Suspect]
     Active Substance: MYCOPHENOLATE SODIUM
     Indication: Lupus nephritis
     Dosage: 360 MG
     Route: 048
     Dates: start: 20210805
  2. MYFORTIC [Suspect]
     Active Substance: MYCOPHENOLATE SODIUM
     Dosage: 720 MG, QD
     Route: 048
  3. FLURBIPROFEN [Concomitant]
     Active Substance: FLURBIPROFEN
     Indication: Systemic lupus erythematosus
     Dosage: UNK
     Route: 061
     Dates: start: 20210610
  4. LOSARTAN POTASSIUM [Concomitant]
     Active Substance: LOSARTAN POTASSIUM
     Indication: Essential hypertension
     Dosage: UNK
     Route: 048
     Dates: start: 20210218, end: 20210929
  5. GENTAMICIN [Concomitant]
     Active Substance: GENTAMICIN
     Indication: Carbuncle
     Dosage: UNK
     Route: 061
     Dates: start: 20210602, end: 20211014
  6. PIRENOXINE [Concomitant]
     Active Substance: PIRENOXINE
     Indication: Cataract
     Dosage: UNK (OPHTHALMIC SUSPENSION)
     Route: 047
     Dates: start: 20180601
  7. POLYVINYL ALCOHOL [Concomitant]
     Active Substance: POLYVINYL ALCOHOL
     Indication: Dry eye
     Dosage: UNK (POLYVINYL ALCOHOL 14MG/ML)
     Route: 047
     Dates: start: 20180601
  8. CARTEOLOL HYDROCHLORIDE LA [Concomitant]
     Indication: Macular degeneration
     Dosage: UNK
     Route: 047
     Dates: start: 20200622
  9. VAXIGRIP [Concomitant]
     Active Substance: INFLUENZA VIRUS VACCINE
     Indication: Product used for unknown indication
     Dosage: UNK (INFLUENZA VACCINATION)
     Route: 030
     Dates: start: 20211223, end: 20211223
  10. ACETAMINOPHEN [Concomitant]
     Active Substance: ACETAMINOPHEN
     Indication: Face injury
     Dosage: UNK
     Route: 048
     Dates: start: 20220105, end: 20220107
  11. GENTAMICIN [Concomitant]
     Active Substance: GENTAMICIN
     Indication: Face injury
     Dosage: UNK
     Route: 061
     Dates: start: 20220105, end: 20220107
  12. TETANUS TOXOID ADSORBED (VACCINE) [Concomitant]
     Active Substance: CLOSTRIDIUM TETANI TOXOID ANTIGEN (FORMALDEHYDE INACTIVATED)
     Indication: Face injury
     Dosage: UNK
     Route: 030
     Dates: start: 20220105, end: 20220105
  13. FUROSEMIDE [Concomitant]
     Active Substance: FUROSEMIDE
     Indication: Lupus nephritis
     Dosage: UNK
     Route: 048
     Dates: start: 20220120
  14. AMLODIPINE BESYLATE\OLMESARTAN MEDOXOMIL [Concomitant]
     Active Substance: AMLODIPINE BESYLATE\OLMESARTAN MEDOXOMIL
     Indication: Essential hypertension
     Dosage: UNK (AMLODIPINE 5MG+OLMESARTAN MEDOXOMIL 40MG)
     Route: 048
     Dates: start: 20210930
  15. UREA [Concomitant]
     Active Substance: UREA
     Indication: Dermatitis
     Dosage: UNK
     Route: 061
     Dates: start: 20211015, end: 20211219
  16. CLOBETASOL PROPIONATE [Concomitant]
     Active Substance: CLOBETASOL PROPIONATE
     Indication: Dermatitis
     Dosage: UNK
     Route: 061
     Dates: start: 20211015
  17. BETAMETHASONE [Concomitant]
     Active Substance: BETAMETHASONE
     Indication: Dermatitis
     Dosage: UNK
     Route: 061
     Dates: start: 20211220

REACTIONS (1)
  - Cellulitis [Recovered/Resolved]

NARRATIVE: CASE EVENT DATE: 20220120
